FAERS Safety Report 10149597 (Version 1)
Quarter: 2014Q2

REPORT INFORMATION
  Report Type: Spontaneous
  Country: US (occurrence: US)
  Receive Date: 20140502
  Receipt Date: 20140502
  Transmission Date: 20141212
  Serious: No
  Sender: FDA-Public Use
  Company Number: US-PFIZER INC-2014120636

PATIENT
  Age: 68 Year
  Sex: Male
  Weight: 67.57 kg

DRUGS (3)
  1. LIPITOR [Suspect]
     Dosage: 40 MG, DAILY
  2. MYFORTIC [Suspect]
     Dosage: 360 MG, 2X/DAY
  3. VITAMIN D [Suspect]
     Dosage: 6000 IU, DAILY

REACTIONS (3)
  - Incorrect dose administered [Unknown]
  - Vitamin D increased [Unknown]
  - Intentional product misuse [Unknown]
